FAERS Safety Report 21018124 (Version 1)
Quarter: 2022Q2

REPORT INFORMATION
  Report Type: Spontaneous
  Country: US (occurrence: US)
  Receive Date: 20220628
  Receipt Date: 20220628
  Transmission Date: 20220721
  Serious: Yes (Other)
  Sender: FDA-Public Use
  Company Number: US-BAYER-2022A085576

PATIENT
  Age: 47 Year
  Sex: Female

DRUGS (1)
  1. MIRENA [Suspect]
     Active Substance: LEVONORGESTREL
     Indication: Heavy menstrual bleeding
     Dosage: 20?G/DAY
     Route: 015
     Dates: start: 20090415, end: 20220520

REACTIONS (13)
  - Transient ischaemic attack [Recovering/Resolving]
  - Constipation [Recovered/Resolved with Sequelae]
  - Weight increased [Recovering/Resolving]
  - Fatigue [Recovered/Resolved with Sequelae]
  - Feeling abnormal [Recovered/Resolved with Sequelae]
  - Mood swings [Recovered/Resolved with Sequelae]
  - Abdominal distension [Recovering/Resolving]
  - Anxiety [Recovering/Resolving]
  - Panic attack [Recovered/Resolved with Sequelae]
  - Migraine [Recovered/Resolved]
  - Loss of libido [Recovering/Resolving]
  - Bacterial vaginosis [Recovered/Resolved]
  - Device use issue [None]

NARRATIVE: CASE EVENT DATE: 20140415
